FAERS Safety Report 8601136-1 (Version None)
Quarter: 2012Q3

REPORT INFORMATION
  Report Type: 
  Country: None (occurrence: None)
  Receive Date: 20120817
  Receipt Date: 20120807
  Transmission Date: 20120928
  Serious: Yes (Other)
  Sender: FDA-Public Use
  Company Number: PHEH2012US004287

PATIENT
  Sex: Female
  Weight: 55.329 kg

DRUGS (2)
  1. TASIGNA [Suspect]
     Dosage: 150 MG, BID
     Dates: start: 20120417
  2. TASIGNA [Suspect]
     Indication: CHRONIC MYELOID LEUKAEMIA
     Dosage: 300 MG, BID
     Route: 048
     Dates: start: 20120215, end: 20120201

REACTIONS (21)
  - FOOD ALLERGY [None]
  - PNEUMONIA [None]
  - CHOLELITHIASIS [None]
  - UVEITIS [None]
  - TOOTH DISCOLOURATION [None]
  - CHEST PAIN [None]
  - FLATULENCE [None]
  - DENTAL CARIES [None]
  - ABDOMINAL PAIN UPPER [None]
  - WHITE BLOOD CELL COUNT DECREASED [None]
  - NASOPHARYNGITIS [None]
  - WEIGHT DECREASED [None]
  - LIVER FUNCTION TEST ABNORMAL [None]
  - ACUTE ABDOMEN [None]
  - NAUSEA [None]
  - FATIGUE [None]
  - EYE INFECTION [None]
  - EPISTAXIS [None]
  - PLATELET COUNT DECREASED [None]
  - ABDOMINAL PAIN [None]
  - TOOTHACHE [None]
